FAERS Safety Report 6531112-4 (Version None)
Quarter: 2010Q1

REPORT INFORMATION
  Report Type: 
  Country: None (occurrence: None)
  Receive Date: 20100108
  Receipt Date: 20091229
  Transmission Date: 20100710
  Serious: Yes (Hospitalization)
  Sender: FDA-Public Use
  Company Number: JP-SANOFI-AVENTIS-2010SA000685

PATIENT
  Sex: Male

DRUGS (3)
  1. LANTUS [Suspect]
     Dosage: DOSE:2 UNIT(S)
     Route: 058
  2. OPTICLICK [Suspect]
  3. HUMALOG [Concomitant]
     Dosage: 4-2-4 UNITS

REACTIONS (1)
  - CEREBRAL HAEMORRHAGE [None]
